FAERS Safety Report 18451904 (Version 1)
Quarter: 2020Q4

REPORT INFORMATION
  Report Type: Spontaneous
  Country: AL (occurrence: AL)
  Receive Date: 20201030
  Receipt Date: 20201030
  Transmission Date: 20210114
  Serious: Yes (Hospitalization)
  Sender: FDA-Public Use
  Company Number: None

PATIENT
  Age: 45 Year
  Sex: Female

DRUGS (1)
  1. EMPAGLIFLOZIN [Suspect]
     Active Substance: EMPAGLIFLOZIN

REACTIONS (3)
  - Euglycaemic diabetic ketoacidosis [None]
  - Alpha hydroxybutyrate dehydrogenase increased [None]
  - Anion gap abnormal [None]

NARRATIVE: CASE EVENT DATE: 20201030
